FAERS Safety Report 4387513-6 (Version None)
Quarter: 2004Q2

REPORT INFORMATION
  Report Type: 
  Country: None (occurrence: None)
  Receive Date: 20040630
  Receipt Date: 20040430
  Transmission Date: 20050107
  Serious: No
  Sender: FDA-Public Use
  Company Number: US-GLAXOSMITHKLINE-A0509132A

PATIENT
  Age: 72 Year
  Sex: Male

DRUGS (4)
  1. ADVAIR HFA [Suspect]
     Dosage: 1PUFF TWICE PER DAY
     Route: 055
     Dates: start: 20040325, end: 20040430
  2. NEXIUM [Concomitant]
  3. TIMOPTIC [Concomitant]
  4. ANTI-CHOLESTEROL MEDICATION [Concomitant]

REACTIONS (2)
  - MUSCLE CRAMP [None]
  - PARAESTHESIA [None]
